FAERS Safety Report 7903184-3 (Version None)
Quarter: 2011Q4

REPORT INFORMATION
  Report Type: 
  Country: None (occurrence: None)
  Receive Date: 20111108
  Receipt Date: 20111108
  Transmission Date: 20120403
  Serious: Yes (Death)
  Sender: FDA-Public Use
  Company Number: None

PATIENT
  Age: 57 Year
  Sex: Female

DRUGS (1)
  1. XELODA [Suspect]
     Indication: NEOPLASM MALIGNANT
     Dosage: 500 (M-F) 2 BID ORAL
     Route: 048
     Dates: start: 20110801, end: 20111001

REACTIONS (2)
  - DEPRESSED MOOD [None]
  - NEOPLASM PROGRESSION [None]
